FAERS Safety Report 8612161-9 (Version None)
Quarter: 2012Q3

REPORT INFORMATION
  Report Type: 
  Country: None (occurrence: None)
  Receive Date: 20120822
  Receipt Date: 20120817
  Transmission Date: 20120928
  Serious: No
  Sender: FDA-Public Use
  Company Number: US-PFIZER INC-2012203296

PATIENT
  Age: 40 Year
  Sex: Male
  Weight: 74.83 kg

DRUGS (4)
  1. LYRICA [Suspect]
     Indication: BURNING SENSATION
  2. LYRICA [Suspect]
     Indication: NEUROPATHY PERIPHERAL
  3. LYRICA [Suspect]
  4. LYRICA [Suspect]
     Indication: NERVOUS SYSTEM DISORDER
     Dosage: UNK
     Route: 048
     Dates: start: 20120601, end: 20120601

REACTIONS (3)
  - BURNING SENSATION [None]
  - FATIGUE [None]
  - INSOMNIA [None]
